FAERS Safety Report 18601708 (Version 1)
Quarter: 2020Q4

REPORT INFORMATION
  Report Type: Spontaneous
  Country: BR (occurrence: BR)
  Receive Date: 20201210
  Receipt Date: 20201210
  Transmission Date: 20210114
  Serious: Yes (Other)
  Sender: FDA-Public Use
  Company Number: NVSC2020BR327879

PATIENT
  Age: 46 Year
  Sex: Female

DRUGS (5)
  1. GOSERELIN [Suspect]
     Active Substance: GOSERELIN
     Dosage: UNK (QUARTERLY)
     Route: 065
  2. ANASTROZOLE. [Suspect]
     Active Substance: ANASTROZOLE
     Indication: BREAST CANCER METASTATIC
     Dosage: 1 MG (PER DAY)
     Route: 065
     Dates: start: 20191004
  3. ZOLEDRONIC ACID [Suspect]
     Active Substance: ZOLEDRONIC ACID
     Indication: BREAST CANCER METASTATIC
     Dosage: UNK (QUARTERLY)
     Route: 065
     Dates: start: 20191004
  4. RIBOCICLIB. [Suspect]
     Active Substance: RIBOCICLIB
     Indication: BREAST CANCER METASTATIC
     Dosage: 600 MG, QD (FOR 21 CONSECUTIVE DAYS TO EACH 28?DAY CYCLE)
     Route: 065
     Dates: start: 20191028
  5. GOSERELIN [Suspect]
     Active Substance: GOSERELIN
     Indication: BREAST CANCER METASTATIC
     Dosage: UNK (MONTHLY)
     Route: 065
     Dates: start: 20191204

REACTIONS (4)
  - Neutropenia [Recovered/Resolved]
  - Lacrimation increased [Unknown]
  - Asthenia [Unknown]
  - Hypocalcaemia [Unknown]

NARRATIVE: CASE EVENT DATE: 202007
